FAERS Safety Report 15069884 (Version 1)
Quarter: 2018Q2

REPORT INFORMATION
  Report Type: Spontaneous
  Country: US (occurrence: US)
  Receive Date: 20180626
  Receipt Date: 20180626
  Transmission Date: 20180711
  Serious: No
  Sender: FDA-Public Use
  Company Number: US-AMGEN-USASP2014072813

PATIENT
  Sex: Female

DRUGS (2)
  1. 5 FU [Concomitant]
     Active Substance: FLUOROURACIL
     Dosage: UNK UNK, EVERY 14 DAYS
  2. NEULASTA [Suspect]
     Active Substance: PEGFILGRASTIM
     Indication: PRODUCT USED FOR UNKNOWN INDICATION
     Dosage: UNK
     Route: 065

REACTIONS (2)
  - Chest pain [Unknown]
  - Injection site pain [Unknown]

NARRATIVE: CASE EVENT DATE: 201409
